FAERS Safety Report 13905203 (Version 1)
Quarter: 2017Q3

REPORT INFORMATION
  Report Type: Spontaneous
  Country: US (occurrence: None)
  Receive Date: 20170824
  Receipt Date: 20170824
  Transmission Date: 20171127
  Serious: Yes (Death)
  Sender: FDA-Public Use
  Company Number: None

PATIENT
  Age: 87 Year
  Sex: Female

DRUGS (2)
  1. TOBRAMYCIN 300MG/5ML [Suspect]
     Active Substance: TOBRAMYCIN
     Indication: BRONCHIECTASIS
     Dosage: 300MG/5ML 5ML Q12H ORAL NEBULIZED
     Route: 048
     Dates: start: 20170626, end: 20170823
  2. TOBRAMYCIN 300MG/5ML [Suspect]
     Active Substance: TOBRAMYCIN
     Indication: PSEUDOMONAS INFECTION
     Dosage: 300MG/5ML 5ML Q12H ORAL NEBULIZED
     Route: 048
     Dates: start: 20170626, end: 20170823

REACTIONS (1)
  - Death [None]

NARRATIVE: CASE EVENT DATE: 20170823
